FAERS Safety Report 6624007-9 (Version None)
Quarter: 2010Q1

REPORT INFORMATION
  Report Type: 
  Country: None (occurrence: None)
  Receive Date: 20100310
  Receipt Date: 20100226
  Transmission Date: 20100710
  Serious: Yes (Other)
  Sender: FDA-Public Use
  Company Number: PHEH2010US02885

PATIENT
  Sex: Female

DRUGS (13)
  1. DIOVAN [Suspect]
     Indication: HYPERTENSION
     Dosage: 320 MG, UNK
     Route: 048
  2. DIOVAN [Suspect]
     Dosage: 160 MG, UNK
  3. METOPROLOL [Suspect]
     Dosage: UNK
  4. DILTIAZEM HCL [Suspect]
  5. ENALAPRIL MALEATE [Suspect]
     Dosage: UNK
  6. ALLEGRA [Concomitant]
     Dosage: UNK
  7. PLAVIX [Concomitant]
  8. ECOTRIN [Concomitant]
     Dosage: UNK
  9. LOVASTATIN [Concomitant]
     Dosage: UNK
  10. MEDROXYPROGESTERONE [Concomitant]
     Dosage: UNK
  11. ESTRADIOL [Concomitant]
     Dosage: UNK
  12. SINGULAIR [Concomitant]
     Dosage: UNK
  13. FOLIC ACID [Concomitant]
     Dosage: UNK

REACTIONS (4)
  - AORTIC OCCLUSION [None]
  - BLOOD PRESSURE INCREASED [None]
  - CATHETERISATION CARDIAC [None]
  - DRUG INEFFECTIVE [None]
